FAERS Safety Report 15074689 (Version 1)
Quarter: 2018Q3

REPORT INFORMATION
  Report Type: Report from Study
  Country: US (occurrence: US)
  Receive Date: 20180627
  Receipt Date: 20180627
  Transmission Date: 20181010
  Serious: No
  Sender: FDA-Public Use
  Company Number: US-SAOL THERAPEUTICS-2017SAO01165

PATIENT
  Sex: Female

DRUGS (25)
  1. COMPOUNDED BACLOFEN [Suspect]
     Active Substance: BACLOFEN
     Dosage: 196.95 ?G, \DAY
     Route: 037
  2. COMPOUNDED BACLOFEN [Suspect]
     Active Substance: BACLOFEN
     Dosage: 150.17 ?G, \DAY
     Route: 037
  3. DILAUDID [Suspect]
     Active Substance: HYDROMORPHONE HYDROCHLORIDE
     Dosage: 1.1992 MG, \DAY
     Route: 037
  4. DILAUDID [Suspect]
     Active Substance: HYDROMORPHONE HYDROCHLORIDE
     Dosage: 1.261 MG, \DAY
     Route: 037
  5. CLONIDINE. [Suspect]
     Active Substance: CLONIDINE
     Dosage: 107.32 ?G, \DAY
     Route: 037
  6. DROPERIDOL. [Suspect]
     Active Substance: DROPERIDOL
     Dosage: 60.07 ?G, \DAY
     Route: 037
  7. DROPERIDOL. [Suspect]
     Active Substance: DROPERIDOL
     Dosage: 119.92 ?G, \DAY
     Route: 037
  8. DILAUDID [Suspect]
     Active Substance: HYDROMORPHONE HYDROCHLORIDE
     Dosage: 1.609 MG, \DAY
     Route: 037
  9. CLONIDINE. [Suspect]
     Active Substance: CLONIDINE
     Dosage: 84.07 ?G, \DAY
     Route: 037
  10. DROPERIDOL. [Suspect]
     Active Substance: DROPERIDOL
     Dosage: 160.98 ?G, \DAY
     Route: 037
  11. COMPOUNDED BACLOFEN [Suspect]
     Active Substance: BACLOFEN
     Dosage: 210.16 ?G, \DAY
     Route: 037
  12. DILAUDID [Suspect]
     Active Substance: HYDROMORPHONE HYDROCHLORIDE
     Dosage: 1.181 MG, \DAY
     Route: 037
  13. BUPIVACAINE. [Suspect]
     Active Substance: BUPIVACAINE
     Dosage: 9.010 MG, \DAY
     Route: 037
  14. CLONIDINE. [Suspect]
     Active Substance: CLONIDINE
     Dosage: 60.07 ?G, \DAY
     Route: 037
  15. DROPERIDOL. [Suspect]
     Active Substance: DROPERIDOL
     Dosage: 78.78 ?G, \DAY
     Route: 037
  16. COMPOUNDED BACLOFEN [Suspect]
     Active Substance: BACLOFEN
     Dosage: 268.3 ?G, \DAY
     Route: 037
  17. BUPIVACAINE. [Suspect]
     Active Substance: BUPIVACAINE
     Dosage: 16.098 MG, \DAY
     Route: 037
  18. DROPERIDOL. [Suspect]
     Active Substance: DROPERIDOL
     Dosage: 84.07 ?G, \DAY
     Route: 037
     Dates: start: 20170314
  19. BUPIVACAINE. [Suspect]
     Active Substance: BUPIVACAINE
     Dosage: 11.992 MG, \DAY
     Route: 037
  20. BUPIVACAINE. [Suspect]
     Active Substance: BUPIVACAINE
     Dosage: 12.610 MG, \DAY
     Route: 037
  21. COMPOUNDED BACLOFEN [Suspect]
     Active Substance: BACLOFEN
     Dosage: 199.86 ?G, \DAY
     Route: 037
  22. DILAUDID [Suspect]
     Active Substance: HYDROMORPHONE HYDROCHLORIDE
     Dosage: 0.9010 MG, \DAY
     Route: 037
  23. BUPIVACAINE. [Suspect]
     Active Substance: BUPIVACAINE
     Dosage: 11.817 MG, \DAY
     Route: 037
  24. CLONIDINE. [Suspect]
     Active Substance: CLONIDINE
     Dosage: 79.94 ?G, \DAY
     Route: 037
  25. CLONIDINE. [Suspect]
     Active Substance: CLONIDINE
     Dosage: 78.78 ?G, \DAY
     Route: 037

REACTIONS (2)
  - Hypoaesthesia [Recovered/Resolved]
  - Paraesthesia [Not Recovered/Not Resolved]

NARRATIVE: CASE EVENT DATE: 20130722
